FAERS Safety Report 9216260 (Version 2)
Quarter: 2013Q2

REPORT INFORMATION
  Report Type: Spontaneous
  Country: ID (occurrence: None)
  Receive Date: 20130404
  Receipt Date: 20130415
  Transmission Date: 20140414
  Serious: Yes (Hospitalization)
  Sender: FDA-Public Use
  Company Number: 2013-000899

PATIENT
  Age: 67 Year
  Sex: Female

DRUGS (1)
  1. ACTONEL [Suspect]
     Indication: OSTEOPOROSIS
     Dosage: ONCE MONTHLY
     Route: 048
     Dates: start: 20130322

REACTIONS (4)
  - Dehydration [None]
  - Bone pain [None]
  - Gastritis [None]
  - Hypophagia [None]
